FAERS Safety Report 24343470 (Version 3)
Quarter: 2024Q4

REPORT INFORMATION
  Report Type: Spontaneous
  Country: IL (occurrence: IL)
  Receive Date: 20240920
  Receipt Date: 20241209
  Transmission Date: 20250114
  Serious: No
  Sender: PFIZER
  Company Number: IL-PFIZER INC-PV202400122013

PATIENT
  Sex: Male

DRUGS (1)
  1. NGENLA [Suspect]
     Active Substance: SOMATROGON-GHLA
     Dosage: INJECTS TWICE 12 MG FROM A 24 MG SYRINGE

REACTIONS (1)
  - Injection site pain [Unknown]
